FAERS Safety Report 16349996 (Version 4)
Quarter: 2020Q3

REPORT INFORMATION
  Report Type: Report from Study
  Country: BR (occurrence: BR)
  Receive Date: 20190523
  Receipt Date: 20200712
  Transmission Date: 20201104
  Serious: Yes (Hospitalization, Other)
  Sender: FDA-Public Use
  Company Number: PHHY2014BR056887

PATIENT
  Age: 57 Year
  Sex: Female
  Weight: 62 kg

DRUGS (17)
  1. XOLAIR [Suspect]
     Active Substance: OMALIZUMAB
     Dosage: 300 MG, QMO
     Route: 058
  2. MORPHINE [Concomitant]
     Active Substance: MORPHINE
     Indication: SLEEP DISORDER
  3. XOLAIR [Suspect]
     Active Substance: OMALIZUMAB
     Indication: ASTHMA
     Dosage: 300 MG, QMO (150 MG, 2 AMPOULES/MONTH)
     Route: 058
     Dates: start: 20130601
  4. ENALAPRIL [Suspect]
     Active Substance: ENALAPRIL
     Indication: HYPERTENSION
     Dosage: UNK
     Route: 065
  5. XOLAIR [Suspect]
     Active Substance: OMALIZUMAB
     Dosage: 150 MG, EVERY 4 WEEKS
     Route: 058
     Dates: start: 20181228
  6. XOLAIR [Suspect]
     Active Substance: OMALIZUMAB
     Dosage: 300 MG, QMO
     Route: 058
     Dates: start: 20170517
  7. XOLAIR [Suspect]
     Active Substance: OMALIZUMAB
     Dosage: 150 MG, QMO (2 AMPOULES) (ONE IN EACH ARM)
     Route: 058
  8. XOLAIR [Suspect]
     Active Substance: OMALIZUMAB
     Dosage: 150 MG, EVERY 4 WEEKS
     Route: 058
     Dates: start: 20181001
  9. XOLAIR [Suspect]
     Active Substance: OMALIZUMAB
     Dosage: 150 MG, QMO (2 AMPOULES)
     Route: 058
     Dates: start: 20190517
  10. LOSARTAN. [Suspect]
     Active Substance: LOSARTAN
     Indication: HYPERTENSION
     Dosage: 50 MG, BID
     Route: 048
  11. METICORTEN [Concomitant]
     Active Substance: PREDNISONE
     Indication: PULMONARY PAIN
     Dosage: 1 DF, QD (SINCE SHE WAS 22 YEARS OLD)
     Route: 048
  12. OMEPRAZOLE. [Concomitant]
     Active Substance: OMEPRAZOLE
     Indication: GASTROINTESTINAL DISORDER PROPHYLAXIS
     Dosage: 2 DF, QD
     Route: 048
     Dates: start: 201705
  13. BUDESONIDE. [Concomitant]
     Active Substance: BUDESONIDE
     Indication: NASAL DISORDER
     Dosage: 1 DF, QD (ONE PUFF INEACH NOSTRIL)
     Route: 055
  14. MORPHINE [Concomitant]
     Active Substance: MORPHINE
     Indication: PAIN
     Dosage: 1 DF, QD (STARTED TWO MONTHS AGO)
     Route: 048
  15. MORPHINE [Concomitant]
     Active Substance: MORPHINE
     Indication: PULMONARY PAIN
  16. XOLAIR [Suspect]
     Active Substance: OMALIZUMAB
     Dosage: 2 DF, QMO
     Route: 058
  17. ADVEL [Concomitant]
     Indication: HEADACHE
     Dosage: SPORADICALLY
     Route: 065

REACTIONS (32)
  - Dyspnoea [Recovered/Resolved]
  - Chest discomfort [Recovered/Resolved]
  - Depression [Not Recovered/Not Resolved]
  - Gastrooesophageal reflux disease [Recovering/Resolving]
  - Fatigue [Recovering/Resolving]
  - Varices oesophageal [Not Recovered/Not Resolved]
  - Glucose tolerance impaired [Recovering/Resolving]
  - Bronchitis [Recovered/Resolved]
  - Pulmonary pain [Recovered/Resolved]
  - Cough [Recovered/Resolved]
  - Pulmonary thrombosis [Recovered/Resolved]
  - Urinary tract infection [Not Recovered/Not Resolved]
  - Bone pain [Not Recovered/Not Resolved]
  - Influenza [Recovered/Resolved]
  - Dry mouth [Recovered/Resolved]
  - Chest pain [Recovered/Resolved]
  - Asthmatic crisis [Recovered/Resolved]
  - Dyspnoea [Recovered/Resolved]
  - Varicose vein [Not Recovered/Not Resolved]
  - Malaise [Recovered/Resolved]
  - Nervousness [Not Recovered/Not Resolved]
  - Fibromyalgia [Not Recovered/Not Resolved]
  - Visual impairment [Not Recovered/Not Resolved]
  - Epistaxis [Recovering/Resolving]
  - Asthma [Recovering/Resolving]
  - Insomnia [Recovering/Resolving]
  - Sensitivity to weather change [Unknown]
  - Dyspnoea exertional [Recovered/Resolved]
  - Myocardial infarction [Recovered/Resolved]
  - Back pain [Recovered/Resolved]
  - Nasal dryness [Recovered/Resolved]
  - Aphonia [Recovered/Resolved]

NARRATIVE: CASE EVENT DATE: 201505
